APPROVED DRUG PRODUCT: LENVIMA
Active Ingredient: LENVATINIB MESYLATE
Strength: EQ 10MG BASE
Dosage Form/Route: CAPSULE;ORAL
Application: N206947 | Product #002
Applicant: EISAI INC
Approved: Feb 13, 2015 | RLD: Yes | RS: Yes | Type: RX

PATENTS:
Patent 12083112 | Expires: Mar 3, 2036
Patent 12083112 | Expires: Mar 3, 2036
Patent 11090386 | Expires: Feb 23, 2036
Patent 12226409 | Expires: May 15, 2038
Patent 9006256 | Expires: Jul 27, 2027
Patent 12508313 | Expires: Oct 4, 2030
Patent 11186547 | Expires: Aug 26, 2035
Patent 7612208 | Expires: Sep 19, 2026
Patent 10407393 | Expires: Aug 26, 2035
Patent 10259791 | Expires: Aug 26, 2035
Patent 7253286 | Expires: Oct 24, 2025
Patent 7612208*PED | Expires: Mar 19, 2027
Patent 7253286*PED | Expires: Apr 24, 2026
Patent 9006256*PED | Expires: Jan 27, 2028
Patent 11090386*PED | Expires: Aug 23, 2036
Patent 11186547*PED | Expires: Feb 26, 2036
Patent 10407393*PED | Expires: Feb 26, 2036
Patent 12226409*PED | Expires: Nov 15, 2038
Patent 10259791*PED | Expires: Feb 26, 2036
Patent 12508313*PED | Expires: Apr 4, 2031
Patent 12083112*PED | Expires: Sep 3, 2036

EXCLUSIVITY:
Code: M-14 | Date: Apr 3, 2027
Code: ODE-196 | Date: Aug 15, 2025
Code: PED | Date: Feb 15, 2026
Code: PED | Date: Oct 3, 2027